FAERS Safety Report 12629480 (Version 4)
Quarter: 2017Q1

REPORT INFORMATION
  Report Type: Spontaneous
  Country: IL (occurrence: IL)
  Receive Date: 20160808
  Receipt Date: 20170116
  Transmission Date: 20170428
  Serious: Yes (Death, Hospitalization, Other)
  Sender: FDA-Public Use
  Company Number: IL-VIIV HEALTHCARE LIMITED-IL2016GSK112580

PATIENT
  Age: 45 Year
  Sex: Female

DRUGS (4)
  1. EFAVIRENZ [Suspect]
     Active Substance: EFAVIRENZ
     Indication: HIV INFECTION
  2. LOPINAVIR + RITONAVIR [Suspect]
     Active Substance: LOPINAVIR\RITONAVIR
     Indication: HIV INFECTION
  3. TRIUMEQ [Suspect]
     Active Substance: ABACAVIR SULFATE\DOLUTEGRAVIR SODIUM\LAMIVUDINE
     Indication: HIV INFECTION
  4. EMTRICITABINE + TENOFOVIR [Suspect]
     Active Substance: EMTRICITABINE\TENOFOVIR
     Indication: HIV INFECTION

REACTIONS (12)
  - Dyspnoea [Unknown]
  - Cardiac failure [Fatal]
  - Blood creatine phosphokinase increased [Unknown]
  - Troponin T increased [Unknown]
  - Aspartate aminotransferase increased [Unknown]
  - Depression [Unknown]
  - Diarrhoea [Unknown]
  - Myocarditis [Fatal]
  - Necrosis [Unknown]
  - Pyrexia [Unknown]
  - Oedema peripheral [Unknown]
  - Left ventricular dysfunction [Unknown]
